FAERS Safety Report 8437951-7 (Version None)
Quarter: 2012Q2

REPORT INFORMATION
  Report Type: 
  Country: None (occurrence: None)
  Receive Date: 20120614
  Receipt Date: 20120525
  Transmission Date: 20120825
  Serious: No
  Sender: FDA-Public Use
  Company Number: US-AMGEN-USASP2012017102

PATIENT
  Sex: Male
  Weight: 97.052 kg

DRUGS (2)
  1. XGEVA [Suspect]
     Indication: PROSTATE CANCER METASTATIC
     Dosage: 60 MG, Q4WK
     Dates: start: 20111020
  2. XGEVA [Suspect]
     Dosage: 120 MG, Q4WK
     Dates: start: 20110919

REACTIONS (3)
  - MALAISE [None]
  - DIZZINESS [None]
  - DYSPNOEA [None]
